FAERS Safety Report 20513561 (Version 1)
Quarter: 2022Q1

REPORT INFORMATION
  Report Type: Spontaneous
  Country: DK (occurrence: DK)
  Receive Date: 20220224
  Receipt Date: 20220224
  Transmission Date: 20220423
  Serious: Yes (Hospitalization)
  Sender: FDA-Public Use
  Company Number: None

PATIENT
  Age: 55 Year
  Sex: Male
  Weight: 104 kg

DRUGS (1)
  1. FRAGMIN [Suspect]
     Active Substance: DALTEPARIN SODIUM
     Indication: Arterial thrombosis
     Dosage: 18 IU, 1X/DAY. STRENGTH:10,000 ANTI-XA IU
     Route: 058
     Dates: start: 20220105

REACTIONS (2)
  - Respiratory distress [Recovering/Resolving]
  - Haemothorax [Recovering/Resolving]

NARRATIVE: CASE EVENT DATE: 20220111
